FAERS Safety Report 16532794 (Version 1)
Quarter: 2019Q3

REPORT INFORMATION
  Report Type: Spontaneous
  Country: US (occurrence: US)
  Receive Date: 20190703
  Receipt Date: 20190703
  Transmission Date: 20191004
  Serious: Yes (Hospitalization)
  Sender: FDA-Public Use
  Company Number: None

PATIENT
  Sex: Male

DRUGS (2)
  1. AFINITOR [Suspect]
     Active Substance: EVEROLIMUS
     Indication: BRONCHIAL CARCINOMA
     Route: 048
     Dates: start: 20190328
  2. METOCLOPRAMIDE. [Concomitant]
     Active Substance: METOCLOPRAMIDE

REACTIONS (2)
  - Epistaxis [None]
  - Haemoglobin decreased [None]
